FAERS Safety Report 7213555-9 (Version None)
Quarter: 2011Q1

REPORT INFORMATION
  Report Type: 
  Country: None (occurrence: None)
  Receive Date: 20110106
  Receipt Date: 20101203
  Transmission Date: 20110831
  Serious: No
  Sender: FDA-Public Use
  Company Number: US-JNJFOC-20101202560

PATIENT
  Sex: Female
  Weight: 127.01 kg

DRUGS (4)
  1. OXCARBAZEPINE [Concomitant]
     Indication: MOOD SWINGS
     Route: 048
  2. INVEGA [Concomitant]
     Indication: PSYCHOTIC DISORDER
     Route: 048
  3. SAPHRIS [Concomitant]
     Indication: PSYCHOTIC DISORDER
     Route: 048
  4. INVEGA SUSTENNA [Suspect]
     Indication: PSYCHOTIC DISORDER
     Route: 030

REACTIONS (1)
  - DRUG DOSE OMISSION [None]
